FAERS Safety Report 8468839-3 (Version None)
Quarter: 2012Q2

REPORT INFORMATION
  Report Type: 
  Country: None (occurrence: None)
  Receive Date: 20120626
  Receipt Date: 20120622
  Transmission Date: 20120825
  Serious: Yes (Life-Threatening)
  Sender: FDA-Public Use
  Company Number: US-BAYER-2012-062795

PATIENT
  Sex: Male

DRUGS (1)
  1. AVELOX [Suspect]
     Indication: PROPHYLAXIS
     Dosage: UNK
     Route: 048
     Dates: start: 20120620

REACTIONS (4)
  - ANAPHYLACTIC SHOCK [None]
  - LIP SWELLING [None]
  - SWOLLEN TONGUE [None]
  - EYE SWELLING [None]
